FAERS Safety Report 21161045 (Version 1)
Quarter: 2022Q3

REPORT INFORMATION
  Report Type: Spontaneous
  Country: US (occurrence: None)
  Receive Date: 20220801
  Receipt Date: 20220801
  Transmission Date: 20221026
  Serious: Yes (Disabling, Other)
  Sender: FDA-Public Use
  Company Number: None

PATIENT
  Age: 68 Year
  Sex: Male
  Weight: 64.75 kg

DRUGS (11)
  1. ACETAMINOPHEN\HYDROCODONE [Suspect]
     Active Substance: ACETAMINOPHEN\HYDROCODONE
     Indication: Spinal column injury
     Dosage: OTHER QUANTITY : 21 TABLET(S);?FREQUENCY : 3 TIMES A DAY;?
     Route: 048
     Dates: start: 20220602, end: 20220706
  2. ASPIRIN [Concomitant]
     Active Substance: ASPIRIN
  3. VITAMINS [Concomitant]
     Active Substance: VITAMINS
  4. VITAMIN E [Concomitant]
     Active Substance: .ALPHA.-TOCOPHEROL
  5. VITAMIN C [Concomitant]
     Active Substance: ASCORBIC ACID
  6. GARLIC [Concomitant]
     Active Substance: GARLIC
  7. HERBALS\TURMERIC [Concomitant]
     Active Substance: HERBALS\TURMERIC
  8. LUTEIN [Concomitant]
     Active Substance: LUTEIN
  9. COLON CLEANSING CAPSULES [Concomitant]
  10. BETA-CAROTENE [Concomitant]
  11. HYDROCODONE [Concomitant]
     Active Substance: HYDROCODONE

REACTIONS (6)
  - Inadequate analgesia [None]
  - Dysstasia [None]
  - Gait disturbance [None]
  - Product measured potency issue [None]
  - Product substitution issue [None]
  - Therapy interrupted [None]

NARRATIVE: CASE EVENT DATE: 20220602
